FAERS Safety Report 9395772 (Version 1)
Quarter: 2013Q3

REPORT INFORMATION
  Report Type: Spontaneous
  Country: US (occurrence: US)
  Receive Date: 20130711
  Receipt Date: 20130711
  Transmission Date: 20140515
  Serious: No
  Sender: FDA-Public Use
  Company Number: US-COVIDIEN/TYCO HEALTHCARE/MALLINCKRODT-T201302801

PATIENT
  Age: 74 Year
  Sex: Female

DRUGS (2)
  1. OXYCODONE/ACETAMINOPHEN [Suspect]
     Indication: MUSCULOSKELETAL CHEST PAIN
     Dosage: 5/325 MG, TOOK ONE TABLET EACH DAY
     Dates: start: 20130603, end: 20130604
  2. MULTIVITAMIN                       /00097801/ [Concomitant]
     Indication: SUPPLEMENTATION THERAPY
     Dosage: UNK

REACTIONS (3)
  - Drug effect increased [Recovered/Resolved]
  - Hypersomnia [Recovered/Resolved]
  - Dizziness [Unknown]
